FAERS Safety Report 4747426-4 (Version None)
Quarter: 2005Q3

REPORT INFORMATION
  Report Type: 
  Country: None (occurrence: None)
  Receive Date: 20050815
  Receipt Date: 20050713
  Transmission Date: 20060218
  Serious: No
  Sender: FDA-Public Use
  Company Number: USA0507102716

PATIENT
  Age: 62 Year
  Sex: Male

DRUGS (6)
  1. CIALIS [Suspect]
     Indication: ERECTILE DYSFUNCTION
     Dosage: 20 MG
  2. LOPRESSOR [Concomitant]
  3. GLUCOPHAGE (METFORMIN /00082701/) [Concomitant]
  4. ZOCOR [Concomitant]
  5. ROBAXIN [Concomitant]
  6. NAPROSYN (NAPROXEN /00256201/) [Concomitant]

REACTIONS (2)
  - BACK PAIN [None]
  - NEURALGIA [None]
